FAERS Safety Report 20042275 (Version 2)
Quarter: 2021Q4

REPORT INFORMATION
  Report Type: Report from Study
  Country: US (occurrence: US)
  Receive Date: 20211108
  Receipt Date: 20211207
  Transmission Date: 20220303
  Serious: Yes (Hospitalization)
  Sender: FDA-Public Use
  Company Number: US-JNJFOC-20210904834

PATIENT
  Age: 55 Year
  Sex: Female
  Weight: 122.3 kg

DRUGS (6)
  1. SELEXIPAG [Suspect]
     Active Substance: SELEXIPAG
     Indication: Pulmonary hypertension
     Route: 048
  2. SELEXIPAG [Suspect]
     Active Substance: SELEXIPAG
     Route: 048
  3. ADEMPAS [Concomitant]
     Active Substance: RIOCIGUAT
     Indication: Product used for unknown indication
     Route: 065
  4. ELIQUIS [Concomitant]
     Active Substance: APIXABAN
     Indication: Product used for unknown indication
     Route: 065
  5. LETAIRIS [Concomitant]
     Active Substance: AMBRISENTAN
     Indication: Product used for unknown indication
     Route: 065
  6. WARFARIN [Concomitant]
     Active Substance: WARFARIN
     Indication: Product used for unknown indication
     Route: 065

REACTIONS (6)
  - Pulmonary arterial hypertension [Unknown]
  - Generalised oedema [Unknown]
  - Autoscopy [Recovered/Resolved]
  - Diarrhoea [Unknown]
  - Dyspnoea exertional [Not Recovered/Not Resolved]
  - Urine output decreased [Unknown]

NARRATIVE: CASE EVENT DATE: 20210801
